FAERS Safety Report 10513969 (Version 1)
Quarter: 2014Q4

REPORT INFORMATION
  Report Type: Spontaneous
  Country: AU (occurrence: AU)
  Receive Date: 20141013
  Receipt Date: 20141013
  Transmission Date: 20150528
  Serious: Yes (Hospitalization)
  Sender: FDA-Public Use
  Company Number: PHHY2014AU130684

PATIENT
  Age: 44 Year
  Sex: Male

DRUGS (1)
  1. IBUPROFEN. [Suspect]
     Active Substance: IBUPROFEN
     Indication: PAIN
     Route: 065

REACTIONS (7)
  - Pyrexia [Unknown]
  - Neutropenia [Unknown]
  - Mouth ulceration [Unknown]
  - Night sweats [Unknown]
  - Lymphadenopathy [Unknown]
  - Cough [Unknown]
  - Fatigue [Unknown]
